FAERS Safety Report 25222256 (Version 1)
Quarter: 2025Q2

REPORT INFORMATION
  Report Type: Spontaneous
  Country: CN (occurrence: CN)
  Receive Date: 20250421
  Receipt Date: 20250421
  Transmission Date: 20250717
  Serious: Yes (Other)
  Sender: ROCHE
  Company Number: CN-ROCHE-10000259297

PATIENT
  Age: 62 Year
  Sex: Male

DRUGS (3)
  1. ALECTINIB [Suspect]
     Active Substance: ALECTINIB
     Indication: Lung neoplasm malignant
     Route: 065
  2. URSODIOL [Concomitant]
     Active Substance: URSODIOL
  3. DENOSUMAB [Concomitant]
     Active Substance: DENOSUMAB
     Indication: Lung neoplasm malignant

REACTIONS (15)
  - Blood bilirubin increased [Unknown]
  - Metastases to bone [Unknown]
  - Renal impairment [Unknown]
  - Pulmonary mass [Unknown]
  - Emphysema [Unknown]
  - Pulmonary bulla [Unknown]
  - Pulmonary calcification [Unknown]
  - Cerebral ischaemia [Unknown]
  - Blood alkaline phosphatase increased [Unknown]
  - Blood cholesterol decreased [Unknown]
  - Blood triglycerides increased [Unknown]
  - Blood homocysteine increased [Unknown]
  - Lymphadenopathy mediastinal [Unknown]
  - Hilar lymphadenopathy [Unknown]
  - Glomerular filtration rate decreased [Unknown]
